FAERS Safety Report 4323380-4 (Version None)
Quarter: 2004Q1

REPORT INFORMATION
  Report Type: 
  Country: None (occurrence: None)
  Receive Date: 20040325
  Receipt Date: 20040311
  Transmission Date: 20041129
  Serious: Yes (Other)
  Sender: FDA-Public Use
  Company Number: US-GLAXOSMITHKLINE-A0502346A

PATIENT
  Age: 66 Year
  Sex: Female

DRUGS (7)
  1. NAVELBINE [Suspect]
     Indication: OVARIAN CANCER
     Route: 042
     Dates: start: 20040107
  2. COUMADIN [Concomitant]
  3. NORVASC [Concomitant]
  4. ATENOLOL [Concomitant]
  5. IRON SUPPLEMENT [Concomitant]
  6. M.V.I. [Concomitant]
  7. ZOMETA [Concomitant]

REACTIONS (6)
  - BLINDNESS [None]
  - BLINDNESS UNILATERAL [None]
  - RETINAL ARTERY OCCLUSION [None]
  - RETINAL VEIN OCCLUSION [None]
  - RETINOPATHY [None]
  - VISUAL FIELD DEFECT [None]
